FAERS Safety Report 8756144 (Version 3)
Quarter: 2012Q4

REPORT INFORMATION
  Report Type: 
  Country: JP (occurrence: JP)
  Receive Date: 20120828
  Receipt Date: 20120907
  Transmission Date: 20130627
  Serious: Yes (Hospitalization)
  Sender: FDA-Public Use
  Company Number: JP-UCBSA-063960

PATIENT
  Sex: Female

DRUGS (4)
  1. E KEPPRA [Suspect]
     Route: 048
  2. CARBAMAZEPINE [Suspect]
     Dosage: DAILY DOSE: 600 MG
     Route: 048
  3. CARBAMAZEPINE [Suspect]
     Dosage: DAILY DOSE: 800 MG
     Route: 048
  4. QUETIAPINE FUMARATE [Concomitant]
     Route: 048

REACTIONS (2)
  - Psychiatric symptom [Unknown]
  - White blood cell count decreased [Unknown]
